FAERS Safety Report 11309404 (Version 2)
Quarter: 2015Q3

REPORT INFORMATION
  Report Type: Spontaneous
  Country: JP (occurrence: JP)
  Receive Date: 20150724
  Receipt Date: 20150805
  Transmission Date: 20151125
  Serious: Yes (Hospitalization)
  Sender: FDA-Public Use
  Company Number: JP-SA-2015SA108467

PATIENT
  Age: 83 Year
  Sex: Female

DRUGS (4)
  1. AVAPRO [Suspect]
     Active Substance: IRBESARTAN
     Indication: HYPERTENSION
     Route: 048
     Dates: start: 2015, end: 2015
  2. AVAPRO [Suspect]
     Active Substance: IRBESARTAN
     Indication: ACCIDENTAL EXPOSURE TO PRODUCT
     Route: 048
     Dates: start: 2015, end: 2015
  3. LASIX [Concomitant]
     Active Substance: FUROSEMIDE
  4. ALDACTONE-A [Concomitant]
     Active Substance: SPIRONOLACTONE

REACTIONS (2)
  - Cerebral infarction [Unknown]
  - Accidental exposure to product [Unknown]

NARRATIVE: CASE EVENT DATE: 2015
